FAERS Safety Report 10912361 (Version 1)
Quarter: 2015Q1

REPORT INFORMATION
  Report Type: Spontaneous
  Country: US (occurrence: US)
  Receive Date: 20150313
  Receipt Date: 20150313
  Transmission Date: 20150721
  Serious: Yes (Death, Hospitalization, Other)
  Sender: FDA-Public Use
  Company Number: US-SA-2015SA028179

PATIENT
  Age: 56 Year
  Sex: Male
  Weight: 96 kg

DRUGS (18)
  1. LOVENOX [Suspect]
     Active Substance: ENOXAPARIN SODIUM
     Indication: PRODUCT USED FOR UNKNOWN INDICATION
     Route: 058
     Dates: start: 20100208
  2. BEVACIZUMAB [Suspect]
     Active Substance: BEVACIZUMAB
     Indication: GLIOBLASTOMA MULTIFORME
     Route: 042
     Dates: start: 20091214, end: 20091214
  3. INSULIN LENTE [Concomitant]
     Dosage: DOSAGE: 2 IN 1 DAY DOSE:28 UNIT(S)
  4. OMEPRAZOLE. [Concomitant]
     Active Substance: OMEPRAZOLE
  5. BEVACIZUMAB [Suspect]
     Active Substance: BEVACIZUMAB
     Indication: GLIOBLASTOMA MULTIFORME
     Dosage: FREQUENCY- Q 14 DAYS (DAYS 1 AND 5/28 DAY CYCLE)
     Route: 042
     Dates: end: 20090404
  6. BEVACIZUMAB [Suspect]
     Active Substance: BEVACIZUMAB
     Indication: GLIOBLASTOMA MULTIFORME
     Route: 042
     Dates: end: 20100125
  7. IBUPROFEN. [Concomitant]
     Active Substance: IBUPROFEN
  8. TEMODAR [Suspect]
     Active Substance: TEMOZOLOMIDE
     Indication: GLIOBLASTOMA MULTIFORME
     Dosage: FREQUENCY- QDX 5 DAYS (DAYS 1-5 AND 15-19/28 DAY CYCLE
     Route: 048
     Dates: start: 20090404
  9. TEMODAR [Suspect]
     Active Substance: TEMOZOLOMIDE
     Indication: GLIOBLASTOMA MULTIFORME
     Dosage: FREQUENCY- QDX5 EVERY 14 DAYS
     Route: 048
     Dates: start: 20091116
  10. KLONOPIN [Concomitant]
     Active Substance: CLONAZEPAM
  11. GLIPIZIDE. [Concomitant]
     Active Substance: GLIPIZIDE
     Dosage: DOSAGE: 10 MG AM AND 5 MG PM
  12. TYLENOL [Concomitant]
     Active Substance: ACETAMINOPHEN
     Dosage: 1 IN 1 AS REQUIRED
  13. BEVACIZUMAB [Suspect]
     Active Substance: BEVACIZUMAB
     Indication: GLIOBLASTOMA MULTIFORME
     Route: 042
     Dates: start: 20091116
  14. TEMODAR [Suspect]
     Active Substance: TEMOZOLOMIDE
     Indication: GLIOBLASTOMA MULTIFORME
     Route: 048
     Dates: start: 20090616, end: 20091017
  15. TEMODAR [Suspect]
     Active Substance: TEMOZOLOMIDE
     Indication: GLIOBLASTOMA MULTIFORME
     Dosage: QDX 5 DAYS (DATS 1-5 AND 15-19/28 DAY CYCLE)
     Route: 048
     Dates: start: 20091125, end: 20091130
  16. TEMODAR [Suspect]
     Active Substance: TEMOZOLOMIDE
     Indication: GLIOBLASTOMA MULTIFORME
     Dosage: FREQUENCY- QDX5 EVERY 14 DAYS
     Route: 048
     Dates: end: 20100129
  17. BEVACIZUMAB [Suspect]
     Active Substance: BEVACIZUMAB
     Indication: GLIOBLASTOMA MULTIFORME
     Route: 042
     Dates: start: 20091130
  18. NPH INSULIN [Concomitant]
     Active Substance: INSULIN BEEF

REACTIONS (4)
  - Cerebral haemorrhage [Fatal]
  - Encephalopathy [Unknown]
  - Seizure [Recovered/Resolved]
  - Deep vein thrombosis [Unknown]

NARRATIVE: CASE EVENT DATE: 20091224
